FAERS Safety Report 14480727 (Version 1)
Quarter: 2018Q1

REPORT INFORMATION
  Report Type: Spontaneous
  Country: CN (occurrence: CN)
  Receive Date: 20180202
  Receipt Date: 20180202
  Transmission Date: 20180509
  Serious: Yes (Other)
  Sender: FDA-Public Use
  Company Number: CN-PFIZER INC-2018043742

PATIENT
  Age: 65 Year
  Sex: Male
  Weight: 70 kg

DRUGS (4)
  1. MOXIFLOXACIN HYDROCHLORIDE. [Concomitant]
     Active Substance: MOXIFLOXACIN HYDROCHLORIDE
     Indication: BRONCHITIS CHRONIC
     Dosage: 0.4 G, 1X/DAY
     Route: 041
     Dates: start: 20171215, end: 20171225
  2. ENOXAPARIN SODIUM. [Concomitant]
     Active Substance: ENOXAPARIN SODIUM
     Indication: COAGULOPATHY
     Dosage: 4000 IU, 1X/DAY
     Route: 058
     Dates: start: 20171215, end: 20171225
  3. METHYLPREDNISOLONE SODIUM SUCCINATE. [Suspect]
     Active Substance: METHYLPREDNISOLONE SODIUM SUCCINATE
     Indication: INFECTION
     Dosage: 80 MG, 1X/DAY
     Route: 041
     Dates: start: 20171215, end: 20171220
  4. CEFMINOX SODIUM [Concomitant]
     Active Substance: CEFMINOX SODIUM
     Indication: BRONCHITIS CHRONIC
     Dosage: 1 G, 2X/DAY
     Route: 041
     Dates: start: 20171215, end: 20171225

REACTIONS (1)
  - Granulocytosis [Unknown]

NARRATIVE: CASE EVENT DATE: 20171221
